FAERS Safety Report 17914996 (Version 1)
Quarter: 2020Q2

REPORT INFORMATION
  Report Type: Spontaneous
  Country: IT (occurrence: IT)
  Receive Date: 20200619
  Receipt Date: 20200619
  Transmission Date: 20200714
  Serious: Yes (Hospitalization)
  Sender: FDA-Public Use
  Company Number: IT-AUROBINDO-AUR-APL-2020-029626

PATIENT
  Age: 55 Year
  Sex: Female

DRUGS (4)
  1. EXPOSE [Suspect]
     Active Substance: EPERISONE HYDROCHLORIDE
     Indication: LIGAMENT SPRAIN
     Dosage: UNK
     Route: 048
     Dates: start: 20200517, end: 20200518
  2. TACHIPIRINA [Suspect]
     Active Substance: ACETAMINOPHEN
     Indication: LIGAMENT SPRAIN
     Dosage: UNK
     Route: 048
     Dates: start: 20200517, end: 20200518
  3. FELDENE [Suspect]
     Active Substance: PIROXICAM
     Indication: LIGAMENT SPRAIN
     Dosage: UNK
     Route: 048
     Dates: start: 20200517, end: 20200518
  4. OMEPRAZOLE. [Suspect]
     Active Substance: OMEPRAZOLE
     Indication: PRODUCT USED FOR UNKNOWN INDICATION
     Dosage: UNK
     Route: 048
     Dates: start: 20200517, end: 20200518

REACTIONS (2)
  - Rash [Recovered/Resolved]
  - Pruritus [Recovered/Resolved]

NARRATIVE: CASE EVENT DATE: 20200518
